FAERS Safety Report 11076042 (Version 2)
Quarter: 2015Q2

REPORT INFORMATION
  Report Type: Spontaneous
  Country: CO (occurrence: CO)
  Receive Date: 20150429
  Receipt Date: 20150520
  Transmission Date: 20150821
  Serious: Yes (Other)
  Sender: FDA-Public Use
  Company Number: CO-JNJFOC-20150420757

PATIENT
  Age: 74 Year
  Sex: Male
  Weight: 51 kg

DRUGS (1)
  1. SIMPONI [Suspect]
     Active Substance: GOLIMUMAB
     Indication: ANKYLOSING SPONDYLITIS
     Route: 058
     Dates: start: 201405, end: 20141215

REACTIONS (2)
  - Cellulitis [Unknown]
  - Chikungunya virus infection [Unknown]

NARRATIVE: CASE EVENT DATE: 201501
